FAERS Safety Report 12167761 (Version 1)
Quarter: 2016Q1

REPORT INFORMATION
  Report Type: Spontaneous
  Country: FR (occurrence: FR)
  Receive Date: 20160310
  Receipt Date: 20160310
  Transmission Date: 20160526
  Serious: Yes (Hospitalization)
  Sender: FDA-Public Use
  Company Number: FR-009507513-1603FRA002137

PATIENT
  Age: 22 Year
  Sex: Female
  Weight: 44 kg

DRUGS (4)
  1. AMOXICILLIN. [Concomitant]
     Active Substance: AMOXICILLIN
  2. ACETAMINOPHEN. [Concomitant]
     Active Substance: ACETAMINOPHEN
     Dosage: UNK, PRN
  3. IBUPROFEN. [Concomitant]
     Active Substance: IBUPROFEN
     Indication: TOOTHACHE
     Dosage: UNK, PRN
  4. NEXPLANON [Suspect]
     Active Substance: ETONOGESTREL
     Indication: CONTRACEPTION
     Dosage: 68 UNK, UNK
     Route: 058
     Dates: start: 20150709

REACTIONS (11)
  - Weight decreased [Unknown]
  - Hot flush [Unknown]
  - Toothache [Unknown]
  - Implant site pain [Unknown]
  - Implant site pruritus [Unknown]
  - Pyrexia [Unknown]
  - Implant site haemorrhage [Unknown]
  - Vaginal haemorrhage [Unknown]
  - Sinusitis [Unknown]
  - Presyncope [Unknown]
  - Nasopharyngitis [Unknown]

NARRATIVE: CASE EVENT DATE: 20150709
